FAERS Safety Report 8831745 (Version 2)
Quarter: 2012Q4

REPORT INFORMATION
  Report Type: Report from Study
  Country: JP (occurrence: JP)
  Receive Date: 20121009
  Receipt Date: 20121212
  Transmission Date: 20130627
  Serious: Yes (Hospitalization, Other)
  Sender: FDA-Public Use
  Company Number: JP-VERTEX PHARMACEUTICAL INC.-2012-022444

PATIENT
  Age: 65 Year
  Sex: Female

DRUGS (12)
  1. VX-950 (TELAPREVIR) [Suspect]
     Indication: CHRONIC HEPATITIS C
     Dosage: 1500 mg, qd
     Route: 048
     Dates: start: 20120727, end: 20120813
  2. VX-950 (TELAPREVIR) [Suspect]
     Dosage: 1000 mg, qd
     Route: 048
     Dates: start: 20120814
  3. VX-950 (TELAPREVIR) [Suspect]
     Dosage: 1000 mg, qd
     Route: 048
     Dates: start: 20120824, end: 20121004
  4. RIBAVIRIN [Suspect]
     Indication: CHRONIC HEPATITIS C
     Dosage: 400 mg, qd
     Route: 048
  5. RIBAVIRIN [Suspect]
     Dosage: 200 mg, qd
     Route: 048
     Dates: start: 20120824, end: 20121004
  6. PEGINTERFERON ALFA-2B [Suspect]
     Indication: CHRONIC HEPATITIS C
     Dosage: 1.2 ?g/kg, qw
     Route: 058
  7. PEGINTERFERON ALFA-2B [Suspect]
     Dosage: 1.0 ?g/kg, qw
     Route: 058
     Dates: start: 20120824, end: 20121004
  8. CONIEL [Concomitant]
     Dosage: 4 mg, qd
     Route: 048
     Dates: end: 20120820
  9. CONIEL [Concomitant]
     Dosage: 4 mg, qd
     Route: 048
  10. RESTAMIN                           /00000401/ [Concomitant]
     Dosage: UNK, prn
     Route: 061
     Dates: start: 20120730, end: 20120820
  11. NEXIUM                             /01479302/ [Concomitant]
     Dosage: 20 mg, qd
     Route: 048
     Dates: start: 20120731, end: 20120820
  12. MUCOSTA [Concomitant]
     Dosage: 1 DF, prn
     Route: 048
     Dates: end: 20121016

REACTIONS (2)
  - Depressive symptom [Recovered/Resolved]
  - Anaemia [Not Recovered/Not Resolved]
